FAERS Safety Report 8493748-3 (Version None)
Quarter: 2012Q3

REPORT INFORMATION
  Report Type: 
  Country: None (occurrence: None)
  Receive Date: 20120706
  Receipt Date: 20120621
  Transmission Date: 20120928
  Serious: No
  Sender: FDA-Public Use
  Company Number: US-ASTRAZENECA-2012SE41709

PATIENT
  Sex: Female

DRUGS (3)
  1. PREDNISONE [Concomitant]
     Dosage: DOSE WAS INCREASED TO 30 MG
  2. PULMICORT [Suspect]
     Route: 055
  3. SYMBICORT [Suspect]
     Indication: ASTHMA
     Route: 055

REACTIONS (5)
  - ASTHMA [None]
  - DYSPNOEA [None]
  - CHRONIC OBSTRUCTIVE PULMONARY DISEASE [None]
  - ADVERSE DRUG REACTION [None]
  - COUGH [None]
